FAERS Safety Report 7442640 (Version 2)
Quarter: 2013Q4

REPORT INFORMATION
  Report Type: Spontaneous
  Country: US (occurrence: US)
  Receive Date: 20100628
  Receipt Date: 20131230
  Transmission Date: 20140711
  Serious: Yes (Hospitalization)
  Sender: FDA-Public Use
  Company Number: US-AMGEN-KDL420419

PATIENT
  Age: 79 Year
  Sex: Female
  Weight: 53.56 kg

DRUGS (7)
  1. PROCRIT [Suspect]
     Indication: ANAEMIA
     Dosage: 20000 IU, QWK
     Route: 058
     Dates: start: 2007
  2. ACETYLSALICYLIC ACID [Concomitant]
     Dosage: 81 MG, QD
     Route: 048
  3. INSULIN HUMAN INJECTION [Concomitant]
     Dosage: UNK UNK, QD
     Route: 058
  4. INSULIN GLARGINE [Concomitant]
     Dosage: UNK UNK, QD
     Route: 058
  5. HYDRALAZINE [Concomitant]
     Dosage: 250 MG, QD
     Route: 048
  6. ACETAMINOPHEN [Concomitant]
     Dosage: UNK UNK, PRN
     Route: 048
  7. ISOSORBIDE MONONITRATE [Concomitant]
     Dosage: 60 MG, QD
     Route: 048
     Dates: start: 2008

REACTIONS (4)
  - Fall [Recovered/Resolved]
  - Blood count abnormal [Recovered/Resolved]
  - Drug dispensing error [Not Recovered/Not Resolved]
  - Medication error [Recovered/Resolved]
